FAERS Safety Report 23884560 (Version 1)
Quarter: 2024Q2

REPORT INFORMATION
  Report Type: Spontaneous
  Country: US (occurrence: None)
  Receive Date: 20240522
  Receipt Date: 20240522
  Transmission Date: 20240716
  Serious: No
  Sender: FDA-Public Use
  Company Number: None

PATIENT
  Age: 50 Year
  Sex: Female

DRUGS (1)
  1. OXBRYTA [Suspect]
     Active Substance: VOXELOTOR
     Dosage: OTHER FREQUENCY : 3 TABLETS DAILY ;?
     Route: 048
     Dates: start: 20230215

REACTIONS (1)
  - Emergency care [None]

NARRATIVE: CASE EVENT DATE: 20240407
